FAERS Safety Report 10288910 (Version 2)
Quarter: 2014Q3

REPORT INFORMATION
  Report Type: Spontaneous
  Country: GB (occurrence: GB)
  Receive Date: 20140709
  Receipt Date: 20140709
  Transmission Date: 20150326
  Serious: Yes (Disabling)
  Sender: FDA-Public Use
  Company Number: ALCN2006GB002448

PATIENT
  Age: 72 Year
  Sex: Male

DRUGS (4)
  1. ACICLOVIR [Concomitant]
     Active Substance: ACYCLOVIR
     Dates: start: 20040106
  2. DIAMOX SEQUELS [Concomitant]
     Active Substance: ACETAZOLAMIDE
     Dates: start: 20040106
  3. TIMOLOL [Suspect]
     Active Substance: TIMOLOL
     Dates: start: 20040106
  4. PREDNISOLONE ACETATE. [Suspect]
     Active Substance: PREDNISOLONE ACETATE
     Indication: OPHTHALMIC HERPES SIMPLEX
     Dates: start: 20040106

REACTIONS (2)
  - Blindness [Unknown]
  - Corneal deposits [Unknown]

NARRATIVE: CASE EVENT DATE: 20040106
